FAERS Safety Report 17375052 (Version 1)
Quarter: 2020Q1

REPORT INFORMATION
  Report Type: Spontaneous
  Country: JP (occurrence: JP)
  Receive Date: 20200205
  Receipt Date: 20200205
  Transmission Date: 20200409
  Serious: Yes (Other)
  Sender: FDA-Public Use
  Company Number: JP-PFIZER INC-2020042343

PATIENT
  Sex: Female

DRUGS (1)
  1. CABERGOLINE. [Suspect]
     Active Substance: CABERGOLINE
     Dosage: 2 DF, UNK
     Route: 048

REACTIONS (4)
  - Cerebral haematoma [Unknown]
  - Maternal exposure during pregnancy [Unknown]
  - Pituitary haemorrhage [Unknown]
  - Headache [Unknown]
